FAERS Safety Report 10037338 (Version 1)
Quarter: 2014Q1

REPORT INFORMATION
  Report Type: Spontaneous
  Country: US (occurrence: None)
  Receive Date: 20140306
  Receipt Date: 20140306
  Transmission Date: 20141002
  Serious: Yes (Other)
  Sender: FDA-Public Use
  Company Number: 163-21880-13063931

PATIENT
  Age: 72 Year
  Sex: Female
  Weight: 67.13 kg

DRUGS (8)
  1. REVLIMID (LENALIDOMIDE) (CAPSULES) [Suspect]
     Indication: PLASMA CELL MYELOMA
     Dosage: 21 IN 28 D
     Route: 048
     Dates: start: 20130512, end: 20130524
  2. COZAAR (LOSARTAN POTASSIUM) (50 MILLIGRAM, TABLETS) (LOSARTAN POTASSIUM) [Concomitant]
  3. NORVASC (AMLODIPINE BESILATE) [Concomitant]
  4. TOPROL XL (METOPROLOL SUCCINATE) (100 MILLIGRAM) (METOPROLOL SUCCINATE) [Concomitant]
  5. VITAMIN D (ERGOCALCIFEROL) [Concomitant]
  6. ASPIRIN [Concomitant]
  7. CALCIUM + VITAMIN D (LEKOVIT CA) [Concomitant]
  8. MVI (MVI) [Concomitant]

REACTIONS (1)
  - Pulmonary embolism [None]
